FAERS Safety Report 8369564-X (Version None)
Quarter: 2012Q2

REPORT INFORMATION
  Report Type: 
  Country: None (occurrence: None)
  Receive Date: 20120518
  Receipt Date: 20120511
  Transmission Date: 20120825
  Serious: Yes (Hospitalization, Other)
  Sender: FDA-Public Use
  Company Number: US-BAYER-2012-011105

PATIENT
  Age: 23 Year
  Sex: Female
  Weight: 95.238 kg

DRUGS (12)
  1. MOTRIN [Concomitant]
  2. DICYCLOMINE [Concomitant]
     Dosage: 20 MG, QD
  3. FLEXERIL [Concomitant]
     Dosage: 10 MG, QD
     Dates: start: 20100218
  4. TORADOL [Concomitant]
     Dosage: 15 MG, UNK
     Dates: start: 20100218
  5. AMOXICILLIN [Concomitant]
     Dosage: 875 MG, BID
     Dates: start: 20091228
  6. BENTYL [Concomitant]
     Dosage: 20 MG, PRN
     Dates: start: 20100218
  7. MORPHINE [Concomitant]
     Dosage: 10 MG, UNK
     Route: 030
     Dates: start: 20100219
  8. MEDROL [Concomitant]
     Dosage: UNK
     Dates: start: 20100220
  9. YAZ [Suspect]
     Indication: CONTRACEPTION
     Dosage: 1 DF, QD
     Route: 048
  10. NASONEX [Concomitant]
  11. SKELAXIN [Concomitant]
  12. RYNATAN 9-25MG TWO TIMES A DAY AS NEEDED [Concomitant]
     Dosage: UNK UNK, PRN
     Dates: start: 20091228

REACTIONS (2)
  - DEEP VEIN THROMBOSIS [None]
  - PAIN IN EXTREMITY [None]
